FAERS Safety Report 22177876 (Version 1)
Quarter: 2023Q2

REPORT INFORMATION
  Report Type: Spontaneous
  Country: US (occurrence: US)
  Receive Date: 20230405
  Receipt Date: 20230405
  Transmission Date: 20230721
  Serious: Yes (Hospitalization, Other)
  Sender: FDA-Public Use
  Company Number: US-AMGEN-USASP2023054604

PATIENT
  Age: 71 Year
  Sex: Female

DRUGS (6)
  1. MVASI [Suspect]
     Active Substance: BEVACIZUMAB-AWWB
     Indication: Product used for unknown indication
     Dosage: 1000 MILLIGRAM, Q3WK
     Route: 042
  2. MVASI [Suspect]
     Active Substance: BEVACIZUMAB-AWWB
     Dosage: 1000 MILLIGRAM, Q3WK
     Route: 042
  3. ZOFRAN [Concomitant]
     Active Substance: ONDANSETRON HYDROCHLORIDE
     Indication: Nausea
  4. CEFTRIAXONE [Concomitant]
     Active Substance: CEFTRIAXONE
     Dosage: 2 GRAM, QD
     Route: 042
  5. ROBITUSSIN DM [Concomitant]
     Active Substance: DEXTROMETHORPHAN HYDROBROMIDE\GUAIFENESIN
     Dosage: UNK
  6. FLOVENT HFA [Concomitant]
     Active Substance: FLUTICASONE PROPIONATE
     Dosage: UNK, BID

REACTIONS (4)
  - Pneumonia [Unknown]
  - Hypocalcaemia [Unknown]
  - Hyponatraemia [Unknown]
  - Blood magnesium decreased [Unknown]
